FAERS Safety Report 6694340-3 (Version None)
Quarter: 2010Q2

REPORT INFORMATION
  Report Type: 
  Country: None (occurrence: None)
  Receive Date: 20100423
  Receipt Date: 20100416
  Transmission Date: 20101027
  Serious: Yes (Death, Hospitalization)
  Sender: FDA-Public Use
  Company Number: IN-PFIZER INC-2008036293

PATIENT
  Age: 52 Year
  Sex: Male
  Weight: 48 kg

DRUGS (11)
  1. IRINOTECAN HCL [Suspect]
     Indication: COLORECTAL CANCER METASTATIC
     Dosage: 270 MG, EVERY 15 DAYS
     Route: 042
     Dates: start: 20080404, end: 20080418
  2. SUNITINIB MALATE [Suspect]
     Indication: COLORECTAL CANCER METASTATIC
     Dosage: 37.5 MG, 1X/DAY
     Route: 048
     Dates: start: 20080404, end: 20080424
  3. *CALCIUM FOLINATE [Suspect]
     Indication: COLORECTAL CANCER METASTATIC
     Dosage: 300 MG, EVERY 15 DAYS
     Route: 042
     Dates: start: 20080404, end: 20080418
  4. FLUOROURACIL [Suspect]
     Indication: COLORECTAL CANCER METASTATIC
     Dosage: 600 MG, EVERY 15 DAYS
     Route: 040
     Dates: start: 20080404, end: 20080419
  5. FLUOROURACIL [Suspect]
     Dosage: 1800 MG, EVERY 15 DAYS
     Route: 041
     Dates: start: 20080404, end: 20080419
  6. DOMPERIDONE/PANTOPRAZOLE [Concomitant]
     Route: 048
     Dates: start: 20080403
  7. CYPROHEPTADINE HCL [Concomitant]
     Route: 048
     Dates: start: 20080403
  8. GALENIC /SPIRONOLACTONE/FUROSEMIDE/ [Concomitant]
     Route: 048
     Dates: start: 20080403
  9. ONDANSETRON [Concomitant]
     Route: 048
     Dates: start: 20080418
  10. PROCHLORPERAZINE [Concomitant]
     Route: 048
     Dates: start: 20080419
  11. DIGENE GEL [Concomitant]
     Route: 048
     Dates: start: 20080419

REACTIONS (10)
  - ANAEMIA [None]
  - ANURIA [None]
  - ASCITES [None]
  - ASTHENIA [None]
  - CONSTIPATION [None]
  - NAUSEA [None]
  - NEUTROPENIA [None]
  - SEPSIS [None]
  - THROMBOCYTOPENIA [None]
  - VOMITING [None]
